FAERS Safety Report 8486207-5 (Version None)
Quarter: 2012Q3

REPORT INFORMATION
  Report Type: 
  Country: None (occurrence: None)
  Receive Date: 20120703
  Receipt Date: 20120626
  Transmission Date: 20120928
  Serious: Yes (Hospitalization, Other)
  Sender: FDA-Public Use
  Company Number: DE-ELI_LILLY_AND_COMPANY-DE201205008708

PATIENT
  Sex: Male
  Weight: 76 kg

DRUGS (9)
  1. SIMVASTATIN RATIOPHARM [Concomitant]
     Dosage: 40 MG, QD
  2. EFFIENT [Suspect]
     Indication: STENT PLACEMENT
     Dosage: 60 MG, SINGLE LOADING DOSE
     Dates: start: 20120421
  3. EFFIENT [Suspect]
     Dosage: 10 MG, UNK
     Dates: start: 20120422
  4. HEPARIN [Concomitant]
     Indication: ACUTE MYOCARDIAL INFARCTION
  5. ASPIRIN [Concomitant]
     Dosage: 100 MG, QD
     Dates: start: 20120422
  6. CONCOR [Concomitant]
     Dosage: 1.25 MG, BID
  7. RAMIPRIL HEXAL [Concomitant]
     Dosage: 1.25 MG, BID
  8. SODIUM CHLORIDE [Concomitant]
     Dosage: 2000 MI, OVER 24H
     Route: 042
  9. BIVALIRUDIN [Concomitant]
     Dosage: 5 MG/ML, UNK
     Dates: start: 20120421, end: 20120421

REACTIONS (7)
  - GASTROINTESTINAL HAEMORRHAGE [None]
  - DUODENAL ULCER [None]
  - BRADYCARDIA [None]
  - COLON CANCER [None]
  - ARRHYTHMIA SUPRAVENTRICULAR [None]
  - GASTROOESOPHAGEAL REFLUX DISEASE [None]
  - SINUS ARREST [None]
